FAERS Safety Report 6980347-5 (Version None)
Quarter: 2010Q3

REPORT INFORMATION
  Report Type: 
  Country: None (occurrence: None)
  Receive Date: 20100914
  Receipt Date: 20100903
  Transmission Date: 20110219
  Serious: Yes (Death)
  Sender: FDA-Public Use
  Company Number: TH-ROCHE-726317

PATIENT
  Age: 58 Year
  Sex: Female

DRUGS (1)
  1. OSELTAMIVIR [Suspect]
     Indication: AVIAN INFLUENZA
     Route: 065

REACTIONS (1)
  - DEATH [None]
